FAERS Safety Report 16819502 (Version 2)
Quarter: 2019Q4

REPORT INFORMATION
  Report Type: Spontaneous
  Country: US (occurrence: US)
  Receive Date: 20190917
  Receipt Date: 20191002
  Transmission Date: 20200122
  Serious: Yes (Other)
  Sender: FDA-Public Use
  Company Number: US-TEVA-2019-US-1107381

PATIENT
  Age: 65 Year
  Sex: Male
  Weight: 121 kg

DRUGS (3)
  1. PROAIR HFA [Suspect]
     Active Substance: ALBUTEROL SULFATE
     Route: 055
     Dates: start: 201908, end: 201908
  2. SYMBICORT [Concomitant]
     Active Substance: BUDESONIDE\FORMOTEROL FUMARATE DIHYDRATE
     Indication: LUNG DISORDER
  3. PROAIR HFA [Suspect]
     Active Substance: ALBUTEROL SULFATE
     Indication: LUNG DISORDER
     Route: 065
     Dates: start: 20190902

REACTIONS (10)
  - Dyskinesia [Unknown]
  - Productive cough [Not Recovered/Not Resolved]
  - Loss of consciousness [Unknown]
  - Prescription drug used without a prescription [Unknown]
  - Impaired work ability [Recovered/Resolved]
  - Brain hypoxia [Unknown]
  - Blood pressure decreased [Unknown]
  - Heart rate decreased [Unknown]
  - Overdose [Unknown]
  - Seizure [Unknown]

NARRATIVE: CASE EVENT DATE: 2019
